FAERS Safety Report 10238470 (Version 1)
Quarter: 2014Q2

REPORT INFORMATION
  Report Type: Not Available
  Country: CH (occurrence: CH)
  Receive Date: 20140616
  Receipt Date: 20140616
  Transmission Date: 20141212
  Serious: Yes (Hospitalization)
  Sender: FDA-Public Use
  Company Number: CH-BEH-2014042989

PATIENT
  Age: 22 Year
  Sex: Male

DRUGS (16)
  1. PRIVIGEN [Suspect]
     Indication: PNEUMONIA PARAINFLUENZAE VIRAL
     Dosage: 1 DF DOSAGE FORM; 1 PER 1 DAY
     Route: 041
     Dates: start: 20140425, end: 20140425
  2. PRIVIGEN [Suspect]
     Dosage: 1 DF DOSAGE FORM; 1 PER 1 DAY
     Route: 041
     Dates: start: 20140429, end: 20140429
  3. PANTOZOL [Concomitant]
     Dosage: 40 MG, 1 PER 1 DAY; CONTINUING
     Route: 048
  4. DIFLUCAN [Concomitant]
     Dosage: 200 MG, 2 PER 1 WEEK (TUESDAY AND THURSDAY), CONTINUING
     Route: 048
  5. VALTREX [Concomitant]
     Dosage: 500 MG, 2 PER 1 DAY, CONTINUING
     Route: 048
  6. BACTRIM [Concomitant]
     Dosage: 20 ML, 3 PER 1 WEEK (MONDAY, WEDNESDAY, FRIDAY), CONTINUING
     Route: 048
  7. PREDNISON [Concomitant]
     Dosage: 10 MG, 1 PER 1 DAY, CONTINUING
     Route: 048
  8. RAPAMUNE [Concomitant]
     Dosage: 1 MG, 1 PER 1 DAY, CONTINUING
     Route: 048
  9. LYRICA [Concomitant]
     Dosage: 200 MG, 3 PER 1 DAY, CONTINUING
     Route: 048
  10. CO-DIOVAN [Concomitant]
     Dosage: 80/12.5 MG; 1 DF, 1 PER 1 DAY; END DATE: MAY 2014
     Route: 048
  11. SIRDALUD [Concomitant]
     Dosage: 4 MG, 1 PER 1 DAY, CONTINUING
     Route: 048
  12. LACRINORM [Concomitant]
     Dosage: LONG TERM
     Route: 047
  13. BEPANTHEN [Concomitant]
     Dosage: CONTINUING
     Route: 045
  14. AUGMENTIN [Concomitant]
     Indication: PNEUMONIA PARAINFLUENZAE VIRAL
     Dates: start: 20140409, end: 20140415
  15. TAZOBAC [Concomitant]
     Indication: PNEUMONIA PARAINFLUENZAE VIRAL
     Dates: start: 20140422, end: 20140429
  16. TAVANIC [Concomitant]
     Indication: PNEUMONIA PARAINFLUENZAE VIRAL
     Dates: start: 20140429, end: 20140502

REACTIONS (8)
  - Autoimmune haemolytic anaemia [Recovering/Resolving]
  - Chromaturia [Not Recovered/Not Resolved]
  - Haematuria [Not Recovered/Not Resolved]
  - Renal failure acute [Unknown]
  - Exercise tolerance decreased [Unknown]
  - General physical health deterioration [Not Recovered/Not Resolved]
  - Pyrexia [Unknown]
  - Dizziness [Unknown]
